FAERS Safety Report 7638459-9 (Version None)
Quarter: 2011Q3

REPORT INFORMATION
  Report Type: 
  Country: None (occurrence: None)
  Receive Date: 20110727
  Receipt Date: 20110721
  Transmission Date: 20111222
  Serious: Yes (Hospitalization)
  Sender: FDA-Public Use
  Company Number: JP-ALLERGAN-1110004US

PATIENT
  Age: 8 Year
  Sex: Female

DRUGS (2)
  1. BOTOX [Suspect]
     Dosage: UNK
     Dates: start: 20110201, end: 20110201
  2. BOTOX [Suspect]
     Indication: BLEPHAROSPASM
     Dosage: UNK
     Route: 030
     Dates: start: 20110501, end: 20110501

REACTIONS (2)
  - EOSINOPHILIC PNEUMONIA [None]
  - DYSPNOEA [None]
